FAERS Safety Report 25508489 (Version 1)
Quarter: 2025Q3

REPORT INFORMATION
  Report Type: Spontaneous
  Country: US (occurrence: US)
  Receive Date: 20250703
  Receipt Date: 20250703
  Transmission Date: 20251020
  Serious: No
  Sender: ARDELYX
  Company Number: US-ARDELYX-2025ARDX003563

PATIENT
  Sex: Female

DRUGS (3)
  1. XPHOZAH [Suspect]
     Active Substance: TENAPANOR HYDROCHLORIDE
     Indication: Chronic kidney disease
     Route: 048
     Dates: start: 202501, end: 202505
  2. VELPHORO [Concomitant]
     Active Substance: SUCROFERRIC OXYHYDROXIDE
     Indication: Blood pressure measurement
     Route: 065
     Dates: end: 2025
  3. IRON [Concomitant]
     Active Substance: IRON
     Indication: Dialysis
     Route: 065

REACTIONS (4)
  - Constipation [Unknown]
  - Treatment noncompliance [Unknown]
  - Intentional dose omission [Unknown]
  - Inappropriate schedule of product administration [Unknown]
